FAERS Safety Report 10469424 (Version 1)
Quarter: 2014Q3

REPORT INFORMATION
  Report Type: Spontaneous
  Country: US (occurrence: None)
  Receive Date: 20140922
  Receipt Date: 20140922
  Transmission Date: 20150326
  Serious: No
  Sender: FDA-Public Use
  Company Number: None

PATIENT
  Age: 55 Year
  Sex: Female
  Weight: 63.5 kg

DRUGS (2)
  1. TRAMADOL HYDROCHLORIDE. [Suspect]
     Active Substance: TRAMADOL HYDROCHLORIDE
     Indication: INFLAMMATION
     Dosage: 1 TABLET TWICE DAILY TAKEN BY MOUTH
     Route: 048
     Dates: start: 20140827
  2. TRAMADOL HYDROCHLORIDE. [Suspect]
     Active Substance: TRAMADOL HYDROCHLORIDE
     Indication: PAIN
     Dosage: 1 TABLET TWICE DAILY TAKEN BY MOUTH
     Route: 048
     Dates: start: 20140827

REACTIONS (8)
  - Burning sensation [None]
  - Hot flush [None]
  - Restlessness [None]
  - Somnolence [None]
  - Nausea [None]
  - Abasia [None]
  - Vomiting [None]
  - Headache [None]

NARRATIVE: CASE EVENT DATE: 20140827
